FAERS Safety Report 16042906 (Version 3)
Quarter: 2019Q2

REPORT INFORMATION
  Report Type: Spontaneous
  Country: US (occurrence: US)
  Receive Date: 20190306
  Receipt Date: 20190627
  Transmission Date: 20190711
  Serious: No
  Sender: FDA-Public Use
  Company Number: US-PFIZER INC-2019091488

PATIENT
  Age: 71 Year
  Sex: Female
  Weight: 103 kg

DRUGS (12)
  1. LYRICA [Suspect]
     Active Substance: PREGABALIN
     Indication: NEUROPATHY PERIPHERAL
     Dosage: 100 MG, 4X/DAY
     Route: 048
     Dates: start: 20180920
  2. TIZANIDINE. [Concomitant]
     Active Substance: TIZANIDINE
     Indication: MUSCLE SPASMS
     Dosage: 4 MG, 1X/DAY
  3. OTEZLA [Concomitant]
     Active Substance: APREMILAST
     Indication: PSORIASIS
     Dosage: 30 MG, 2X/DAY
  4. LEVOTHYROXINE. [Concomitant]
     Active Substance: LEVOTHYROXINE
     Indication: THYROID DISORDER
     Dosage: 112 UG, 1X/DAY
  5. METOPROLOL SUCCINATE. [Concomitant]
     Active Substance: METOPROLOL SUCCINATE
     Indication: CARDIAC DISORDER
     Dosage: 25 MG, 1X/DAY
  6. FUROSEMIDE. [Concomitant]
     Active Substance: FUROSEMIDE
     Dosage: 40 MG, UNK
  7. ROSUVASTATIN CALCIUM. [Concomitant]
     Active Substance: ROSUVASTATIN CALCIUM
     Indication: BLOOD CHOLESTEROL INCREASED
     Dosage: 10 MG, 1X/DAY
  8. NOVOLIN R [Suspect]
     Active Substance: INSULIN HUMAN
     Dosage: UNK
  9. POTASSIUM CHLORIDE. [Concomitant]
     Active Substance: POTASSIUM CHLORIDE
     Dosage: UNK, 1X/DAY
  10. NOVOLIN N [Suspect]
     Active Substance: INSULIN HUMAN
     Dosage: UNK, 2X/DAY [70 UNITS AT NIGHT AND 40 UNITS IN MORNING]
  11. WARFARIN [Concomitant]
     Active Substance: WARFARIN
     Dosage: 2.5 MG, UNK
  12. OXYCODONE [Concomitant]
     Active Substance: OXYCODONE
     Indication: NEUROPATHY PERIPHERAL
     Dosage: 30 MG, DAILY

REACTIONS (5)
  - Fluid retention [Unknown]
  - Off label use [Unknown]
  - Product use issue [Unknown]
  - Weight increased [Recovering/Resolving]
  - Abdominal distension [Unknown]

NARRATIVE: CASE EVENT DATE: 20180920
